FAERS Safety Report 22646118 (Version 1)
Quarter: 2023Q2

REPORT INFORMATION
  Report Type: Spontaneous
  Country: US (occurrence: None)
  Receive Date: 20230626
  Receipt Date: 20230626
  Transmission Date: 20230722
  Serious: No
  Sender: FDA-Public Use
  Company Number: None

PATIENT
  Sex: 0

DRUGS (1)
  1. SLYND [Suspect]
     Active Substance: DROSPIRENONE

REACTIONS (1)
  - Abnormal uterine bleeding [None]
